FAERS Safety Report 7304943-0 (Version None)
Quarter: 2011Q1

REPORT INFORMATION
  Report Type: 
  Country: None (occurrence: None)
  Receive Date: 20110222
  Receipt Date: 20110217
  Transmission Date: 20110831
  Serious: Yes (Death)
  Sender: FDA-Public Use
  Company Number: US-AMGEN-USASP2011009718

PATIENT
  Age: 75 Year
  Sex: Male

DRUGS (2)
  1. PLATELETS [Concomitant]
     Indication: IDIOPATHIC THROMBOCYTOPENIC PURPURA
  2. NPLATE [Suspect]
     Indication: IDIOPATHIC THROMBOCYTOPENIC PURPURA
     Dates: start: 20100922, end: 20101004

REACTIONS (1)
  - CHRONIC LYMPHOCYTIC LEUKAEMIA [None]
